FAERS Safety Report 8565335-X (Version None)
Quarter: 2012Q3

REPORT INFORMATION
  Report Type: 
  Country: None (occurrence: None)
  Receive Date: 20120803
  Receipt Date: 20120727
  Transmission Date: 20120928
  Serious: No
  Sender: FDA-Public Use
  Company Number: US-PFIZER INC-2012169635

PATIENT
  Sex: Female

DRUGS (3)
  1. FLUCONAZOLE [Suspect]
     Indication: CANDIDIASIS
     Dosage: UNK
     Route: 042
     Dates: start: 20120601, end: 20120601
  2. ARMODAFINIL [Suspect]
     Indication: CANDIDIASIS
     Dosage: UNK
     Route: 048
     Dates: start: 20120601
  3. ARMODAFINIL [Suspect]

REACTIONS (1)
  - DRUG RESISTANCE [None]
